FAERS Safety Report 19298524 (Version 1)
Quarter: 2021Q2

REPORT INFORMATION
  Report Type: Spontaneous
  Country: US (occurrence: US)
  Receive Date: 20210525
  Receipt Date: 20210525
  Transmission Date: 20210717
  Serious: No
  Sender: FDA-Public Use
  Company Number: US-CADILA HEALTHCARE LIMITED-US-ZYDUS-051355

PATIENT
  Sex: Female

DRUGS (1)
  1. TOPIRAMATE TABLET [Suspect]
     Active Substance: TOPIRAMATE
     Indication: NIGHT SWEATS
     Dosage: 100 MILLIGRAM, QD
     Route: 048
     Dates: start: 2019

REACTIONS (4)
  - Drug effective for unapproved indication [Recovered/Resolved]
  - Drug ineffective for unapproved indication [Not Recovered/Not Resolved]
  - Product physical consistency issue [Not Recovered/Not Resolved]
  - Product use in unapproved indication [Not Recovered/Not Resolved]

NARRATIVE: CASE EVENT DATE: 2019
